FAERS Safety Report 6179495-1 (Version None)
Quarter: 2009Q2

REPORT INFORMATION
  Report Type: 
  Country: None (occurrence: None)
  Receive Date: 20090505
  Receipt Date: 20090423
  Transmission Date: 20091009
  Serious: Yes (Other)
  Sender: FDA-Public Use
  Company Number: PT-ROCHE-625754

PATIENT
  Age: 29 Year
  Sex: Female

DRUGS (7)
  1. MYCOPHENOLATE MOFETIL [Suspect]
     Indication: DRUG USE FOR UNKNOWN INDICATION
     Route: 065
     Dates: start: 20071126
  2. RITUXIMAB [Suspect]
     Indication: IMMUNOSUPPRESSION
     Dosage: DURING 4 CONSECUTIVE WEEKS
     Route: 065
     Dates: start: 20071017
  3. CYCLOPHOSPHAMIDE [Suspect]
     Indication: IMMUNOSUPPRESSION
     Dosage: DOSE FORM; ONE ENDOVENOUS PULSE
     Route: 065
     Dates: start: 20071017
  4. PREDNISOLONE [Suspect]
     Indication: DRUG USE FOR UNKNOWN INDICATION
     Dosage: BASAL THERAPEUTIC
     Route: 065
     Dates: start: 20070919
  5. METILPREDNISOLONE [Suspect]
     Indication: STEROID THERAPY
     Dosage: HIGH-DOSE CORTICOTHERAPY; ENDOVENOUS PULSE (1G) WITH A TOTAL OF 11.5G IN 2 MONTHS
     Route: 065
     Dates: start: 20070919
  6. IMMUNE GLOBULIN INTRAVENOUS (HUMAN) [Suspect]
     Indication: DRUG USE FOR UNKNOWN INDICATION
     Dosage: SEVERAL OCCASIONS
     Route: 065
     Dates: start: 20070919
  7. DANAZOL [Suspect]
     Indication: DRUG USE FOR UNKNOWN INDICATION
     Route: 065
     Dates: start: 20071126

REACTIONS (1)
  - SJOGREN'S SYNDROME [None]
